FAERS Safety Report 5335007-3 (Version None)
Quarter: 2007Q2

REPORT INFORMATION
  Report Type: 
  Country: None (occurrence: None)
  Receive Date: 20070525
  Receipt Date: 20070523
  Transmission Date: 20071010
  Serious: Yes (Other)
  Sender: FDA-Public Use
  Company Number: A0652260A

PATIENT
  Age: 55 Year
  Sex: Male

DRUGS (7)
  1. COMMIT [Suspect]
     Indication: SMOKING CESSATION THERAPY
     Dosage: 4MG SEE DOSAGE TEXT
     Dates: end: 20070511
  2. NICORETTE [Suspect]
  3. HALLS MENTHOLYPTUS [Suspect]
  4. ASPARTAME [Suspect]
     Route: 002
  5. LAMOTRIGINE [Concomitant]
  6. LEVETIRACETAM (INVESTIGATIONAL ANTI-EPILEPTIC STUDY DRUG) [Concomitant]
  7. CLONAZEPAM [Concomitant]

REACTIONS (3)
  - CONVULSION [None]
  - DRUG INEFFECTIVE [None]
  - NICOTINE DEPENDENCE [None]
